FAERS Safety Report 8586222-7 (Version None)
Quarter: 2012Q3

REPORT INFORMATION
  Report Type: 
  Country: None (occurrence: None)
  Receive Date: 20120810
  Receipt Date: 20120801
  Transmission Date: 20120928
  Serious: Yes (Other)
  Sender: FDA-Public Use
  Company Number: CA-ROCHE-1096520

PATIENT
  Sex: Female
  Weight: 83.99 kg

DRUGS (13)
  1. RANITIDINE [Concomitant]
  2. ACTEMRA [Suspect]
     Dates: start: 20120509
  3. AMITRIPTYLINE HCL [Concomitant]
  4. MORPHINE [Concomitant]
  5. DOCUSATE [Concomitant]
  6. TORADOL [Concomitant]
  7. FERROUS FUMARATE [Concomitant]
  8. ETIDRONATE DISODIUM [Concomitant]
  9. PREMARIN [Concomitant]
  10. ACTEMRA [Suspect]
     Indication: RHEUMATOID ARTHRITIS
     Route: 042
     Dates: start: 20110706
  11. CALCIUM CARBONATE [Concomitant]
  12. PREDNISONE TAB [Concomitant]
  13. TYLENOL W/ CODEINE NO. 3 [Concomitant]

REACTIONS (3)
  - HERPES ZOSTER [None]
  - DRUG EFFECT DECREASED [None]
  - IMMOBILE [None]
